FAERS Safety Report 14582180 (Version 1)
Quarter: 2018Q1

REPORT INFORMATION
  Report Type: Spontaneous
  Country: US (occurrence: US)
  Receive Date: 20180228
  Receipt Date: 20180228
  Transmission Date: 20180509
  Serious: Yes (Hospitalization)
  Sender: FDA-Public Use
  Company Number: US-VERTEX PHARMACEUTICALS-2018-001463

PATIENT
  Age: 15 Year
  Sex: Female

DRUGS (2)
  1. CALCITRATE [Concomitant]
     Active Substance: CALCIUM CITRATE
  2. ORKAMBI [Suspect]
     Active Substance: IVACAFTOR\LUMACAFTOR
     Indication: CYSTIC FIBROSIS
     Dosage: 2 TABS, BID
     Route: 048
     Dates: start: 20170808

REACTIONS (2)
  - Cystic fibrosis respiratory infection suppression [Unknown]
  - Stenotrophomonas test positive [Unknown]

NARRATIVE: CASE EVENT DATE: 201802
